FAERS Safety Report 8760822 (Version 1)
Quarter: 2012Q4

REPORT INFORMATION
  Report Type: 
  Country: US (occurrence: US)
  Receive Date: 20120830
  Receipt Date: 20120830
  Transmission Date: 20130627
  Serious: Yes (Other)
  Sender: FDA-Public Use
  Company Number: US-JNJFOC-2010029502

PATIENT
  Age: 36 Year
  Sex: Male
  Weight: 83.9 kg

DRUGS (5)
  1. ROGAINE FOR MEN EXTRA STRENGTH FOAM [Suspect]
     Route: 061
  2. ROGAINE FOR MEN EXTRA STRENGTH FOAM [Suspect]
     Indication: ALOPECIA
     Dosage: Daily Dose Text: Half capful twice daily
     Route: 061
     Dates: start: 20100925, end: 20101123
  3. BIOTIN [Concomitant]
     Indication: ALOPECIA
     Dosage: Daily Dose Text: 5000 mcg 1x daily
     Route: 065
     Dates: start: 2008
  4. ONE-A-DAY [Concomitant]
     Indication: VITAMIN SUPPLEMENTATION
     Dosage: Daily Dose Text: 1x daily
     Route: 065
     Dates: start: 2008
  5. FISH OIL [Concomitant]
     Indication: VITAMIN SUPPLEMENTATION
     Dosage: Daily Dose Text: 1200mg 2x daily
     Route: 065
     Dates: start: 2008

REACTIONS (3)
  - Optic nerve disorder [Recovering/Resolving]
  - Blindness transient [Not Recovered/Not Resolved]
  - Sinusitis [Unknown]
